FAERS Safety Report 13270647 (Version 1)
Quarter: 2017Q1

REPORT INFORMATION
  Report Type: Spontaneous
  Country: US (occurrence: US)
  Receive Date: 20170224
  Receipt Date: 20170224
  Transmission Date: 20170428
  Serious: No
  Sender: FDA-Public Use
  Company Number: US-CELGENEUS-USA-2017025842

PATIENT
  Age: 60 Year
  Sex: Male
  Weight: 64.47 kg

DRUGS (1)
  1. THALOMID [Suspect]
     Active Substance: THALIDOMIDE
     Indication: PLASMA CELL MYELOMA
     Dosage: 100 MILLIGRAM
     Route: 048
     Dates: start: 20161125

REACTIONS (3)
  - Eye pruritus [Unknown]
  - Rash generalised [Unknown]
  - Vision blurred [Unknown]

NARRATIVE: CASE EVENT DATE: 20170201
